FAERS Safety Report 7326488-4 (Version None)
Quarter: 2011Q1

REPORT INFORMATION
  Report Type: 
  Country: None (occurrence: None)
  Receive Date: 20110302
  Receipt Date: 20110225
  Transmission Date: 20110831
  Serious: Yes (Hospitalization, Other)
  Sender: FDA-Public Use
  Company Number: CA-ABBOTT-11P-028-0703150-00

PATIENT
  Sex: Male
  Weight: 74.91 kg

DRUGS (16)
  1. MAVIK [Suspect]
     Indication: PRODUCT USED FOR UNKNOWN INDICATION
     Dosage: DAILY DOSE: 2MG
     Route: 048
     Dates: start: 20100310
  2. PLAVIX [Concomitant]
     Indication: CORONARY ARTERY THROMBOSIS
  3. MAVIK [Suspect]
     Dosage: 2 MG
  4. CRESTOR [Concomitant]
     Indication: BLOOD CHOLESTEROL INCREASED
     Route: 048
  5. THIAMINE [Concomitant]
     Indication: VITAMIN SUPPLEMENTATION
     Route: 048
  6. PLAVIX [Concomitant]
     Indication: ANTICOAGULANT THERAPY
     Route: 048
  7. ALTACE [Concomitant]
     Indication: CARDIAC DISORDER
     Route: 048
  8. ACETLSALICYLIC ACID EC [Concomitant]
     Indication: CORONARY ARTERY THROMBOSIS
  9. LOPRESSOR [Concomitant]
     Indication: CARDIAC DISORDER
     Route: 048
  10. CENTRUM FORTE [Concomitant]
     Indication: VITAMIN SUPPLEMENTATION
     Route: 048
  11. APO-WARFARIN [Concomitant]
     Indication: ANTICOAGULANT THERAPY
     Dosage: AT 17H00
     Route: 048
  12. TINZAPARIN [Concomitant]
     Indication: PRODUCT USED FOR UNKNOWN INDICATION
     Route: 058
  13. ACETLSALICYLIC ACID EC [Concomitant]
     Indication: ANTICOAGULANT THERAPY
     Route: 048
  14. PLAVIX [Concomitant]
     Indication: PROPHYLAXIS
  15. PANTOPRAZOLE EC [Concomitant]
     Indication: PRODUCT USED FOR UNKNOWN INDICATION
     Route: 048
  16. ACETLSALICYLIC ACID EC [Concomitant]
     Indication: PROPHYLAXIS

REACTIONS (4)
  - MYOCARDIAL INFARCTION [None]
  - CORONARY ARTERY THROMBOSIS [None]
  - CHEST PAIN [None]
  - HOSPITALISATION [None]
